FAERS Safety Report 11085778 (Version 2)
Quarter: 2015Q2

REPORT INFORMATION
  Report Type: Spontaneous
  Country: US (occurrence: US)
  Receive Date: 20150503
  Receipt Date: 20150525
  Transmission Date: 20150821
  Serious: No
  Sender: FDA-Public Use
  Company Number: US-JNJFOC-20150308166

PATIENT
  Age: 22 Year
  Sex: Female
  Weight: 48.54 kg

DRUGS (3)
  1. ORTHO TRI CYCLEN LO [Suspect]
     Active Substance: ETHINYL ESTRADIOL\NORGESTIMATE
     Indication: CONTRACEPTION
     Route: 048
     Dates: start: 2011, end: 2012
  2. ACCUTANE [Concomitant]
     Active Substance: ISOTRETINOIN
     Indication: ACNE
     Route: 048
     Dates: start: 201411
  3. ORTHO TRI CYCLEN LO [Suspect]
     Active Substance: ETHINYL ESTRADIOL\NORGESTIMATE
     Indication: CONTRACEPTION
     Route: 048
     Dates: start: 201411

REACTIONS (2)
  - Drug dose omission [Not Recovered/Not Resolved]
  - Migraine [Unknown]

NARRATIVE: CASE EVENT DATE: 2011
